FAERS Safety Report 7198100-9 (Version None)
Quarter: 2010Q4

REPORT INFORMATION
  Report Type: 
  Country: None (occurrence: None)
  Receive Date: 20101210
  Receipt Date: 20101130
  Transmission Date: 20110411
  Serious: Yes (Hospitalization)
  Sender: FDA-Public Use
  Company Number: WAES 1009DEU00108

PATIENT
  Age: 58 Year
  Sex: Male

DRUGS (12)
  1. TAB LAROPIPRANT (+) NIACIN [Suspect]
     Indication: HYPERLIPIDAEMIA
     Dosage: 20MG/1000 MG/BID PO
     Route: 048
     Dates: start: 20100310, end: 20100901
  2. SIMVASTATIN [Suspect]
     Dosage: 40 MG/DAILY PO
     Route: 048
  3. ALLOPURINOL [Suspect]
     Dosage: 300 MG/DAILY PO
     Route: 048
     Dates: start: 20080101
  4. ASPIRIN [Suspect]
     Dosage: 100 MG/DAILY PO
     Route: 048
  5. CANDESARTAN CILEXETIL [Suspect]
     Dosage: 16 MG/BID PO
     Route: 048
  6. LISINOPRIL [Suspect]
     Dosage: 10 MG/DAILY PO
     Route: 048
  7. BENZBROMARONE [Concomitant]
  8. DICLOFENAC [Concomitant]
  9. HYDROCHLOROTHIAZIDE (+) METOPROLOL SUCCI [Concomitant]
  10. OMEPRAZOLE [Concomitant]
  11. TORSEMIDE [Concomitant]
  12. TRAMADOL HCL [Concomitant]

REACTIONS (9)
  - ANTINUCLEAR ANTIBODY POSITIVE [None]
  - BLOOD CREATININE INCREASED [None]
  - DRUG HYPERSENSITIVITY [None]
  - FEELING COLD [None]
  - LEUKOCYTOSIS [None]
  - PETECHIAE [None]
  - RENAL IMPAIRMENT [None]
  - SPLENOMEGALY [None]
  - TUBULOINTERSTITIAL NEPHRITIS [None]
